FAERS Safety Report 24408285 (Version 1)
Quarter: 2024Q4

REPORT INFORMATION
  Report Type: Spontaneous
  Country: FR (occurrence: FR)
  Receive Date: 20241007
  Receipt Date: 20241007
  Transmission Date: 20250115
  Serious: Yes (Hospitalization, Other)
  Sender: DAIICHI
  Company Number: None

PATIENT
  Age: 38 Year
  Sex: Female
  Weight: 50 kg

DRUGS (1)
  1. ENHERTU [Suspect]
     Active Substance: FAM-TRASTUZUMAB DERUXTECAN-NXKI
     Indication: Breast cancer
     Dosage: 4.4 MG/KG
     Route: 042
     Dates: start: 20240821, end: 20240911

REACTIONS (3)
  - Thrombotic microangiopathy [Recovered/Resolved]
  - Disseminated intravascular coagulation [Recovered/Resolved]
  - Intentional product use issue [Recovered/Resolved]

NARRATIVE: CASE EVENT DATE: 20240821
